FAERS Safety Report 16084685 (Version 1)
Quarter: 2019Q2

REPORT INFORMATION
  Report Type: Spontaneous
  Country: US (occurrence: US)
  Receive Date: 20190317
  Receipt Date: 20190317
  Transmission Date: 20190711
  Serious: No
  Sender: FDA-Public Use
  Company Number: None

PATIENT
  Age: 33 Year
  Sex: Female
  Weight: 83.25 kg

DRUGS (3)
  1. SUBOXONE [Suspect]
     Active Substance: BUPRENORPHINE HYDROCHLORIDE\NALOXONE HYDROCHLORIDE
     Indication: DRUG DEPENDENCE
     Dosage: ?          QUANTITY:1 STRIP;?
     Route: 060
     Dates: start: 20160131, end: 20181201
  2. IBUPROFEN. [Concomitant]
     Active Substance: IBUPROFEN
  3. TYLENOL [Concomitant]
     Active Substance: ACETAMINOPHEN

REACTIONS (6)
  - Exposure during pregnancy [None]
  - Product formulation issue [None]
  - Tongue disorder [None]
  - Pregnancy [None]
  - Abortion spontaneous [None]
  - Aphthous ulcer [None]

NARRATIVE: CASE EVENT DATE: 20190315
